FAERS Safety Report 12915230 (Version 1)
Quarter: 2016Q4

REPORT INFORMATION
  Report Type: Spontaneous
  Country: US (occurrence: US)
  Receive Date: 20161106
  Receipt Date: 20161106
  Transmission Date: 20170207
  Serious: No
  Sender: FDA-Public Use
  Company Number: US-RELYPSA-RLY2016002334

PATIENT
  Sex: Female

DRUGS (7)
  1. ALLOPURINOL. [Concomitant]
     Active Substance: ALLOPURINOL
  2. OMEPRAZOLE. [Concomitant]
     Active Substance: OMEPRAZOLE
  3. VELTASSA [Suspect]
     Active Substance: PATIROMER
     Indication: HYPERKALAEMIA
     Dosage: 8.4 G, QD
     Route: 048
  4. ONDANSETRON [Concomitant]
     Active Substance: ONDANSETRON
  5. LOSARTAN. [Concomitant]
     Active Substance: LOSARTAN
  6. AMLODIPINE [Concomitant]
     Active Substance: AMLODIPINE BESYLATE
  7. SODIUM BICARBONATE. [Concomitant]
     Active Substance: SODIUM BICARBONATE

REACTIONS (2)
  - Abdominal pain upper [Unknown]
  - Vomiting [Unknown]

NARRATIVE: CASE EVENT DATE: 2016
